FAERS Safety Report 7334603-1 (Version None)
Quarter: 2011Q1

REPORT INFORMATION
  Report Type: 
  Country: None (occurrence: None)
  Receive Date: 20110224
  Receipt Date: 20110210
  Transmission Date: 20110831
  Serious: Yes (Hospitalization)
  Sender: FDA-Public Use
  Company Number: 027312

PATIENT
  Sex: Female

DRUGS (2)
  1. KEPPRA [Suspect]
     Indication: EPILEPSY
     Dosage: (500 MG ORAL)
     Route: 048
     Dates: start: 20100701, end: 20100701
  2. TEGRETOL [Suspect]
     Indication: EPILEPSY
     Dates: start: 20100601, end: 20100701

REACTIONS (5)
  - RASH [None]
  - ESCHERICHIA SEPSIS [None]
  - ERYTHEMA [None]
  - PHOTOSENSITIVITY REACTION [None]
  - PRURITUS [None]
